FAERS Safety Report 6539186-1 (Version None)
Quarter: 2010Q1

REPORT INFORMATION
  Report Type: 
  Country: None (occurrence: None)
  Receive Date: 20100115
  Receipt Date: 20100111
  Transmission Date: 20100710
  Serious: Yes (Death, Hospitalization)
  Sender: FDA-Public Use
  Company Number: FR-SANOFI-AVENTIS-2010SA001311

PATIENT
  Age: 92 Year
  Sex: Female

DRUGS (23)
  1. RIFADIN [Suspect]
     Dosage: DOSE:6 UNIT(S)
     Route: 048
     Dates: start: 20090912, end: 20091006
  2. BACTRIM [Suspect]
     Dosage: DOSE:3 UNIT(S)
     Route: 048
     Dates: start: 20090912, end: 20091006
  3. GENTAMICIN [Concomitant]
     Route: 051
     Dates: start: 20090827, end: 20090830
  4. VANCOMYCIN [Concomitant]
     Dates: start: 20090827, end: 20090911
  5. LOVENOX [Concomitant]
     Indication: PROPHYLAXIS
     Dates: start: 20090901
  6. NICARDIPINE HCL [Concomitant]
     Indication: DRUG USE FOR UNKNOWN INDICATION
  7. STILNOX [Concomitant]
     Indication: DRUG USE FOR UNKNOWN INDICATION
  8. ESOMEPRAZOLE [Concomitant]
     Indication: DRUG USE FOR UNKNOWN INDICATION
     Dates: start: 20090901
  9. DOLIPRANE [Concomitant]
     Indication: DRUG USE FOR UNKNOWN INDICATION
     Dates: start: 20090901
  10. COAPROVEL [Concomitant]
     Indication: DRUG USE FOR UNKNOWN INDICATION
  11. SEROPLEX [Concomitant]
     Indication: DRUG USE FOR UNKNOWN INDICATION
  12. DUPHALAC /NET/ [Concomitant]
     Indication: DRUG USE FOR UNKNOWN INDICATION
  13. LANSOYL [Concomitant]
     Indication: DRUG USE FOR UNKNOWN INDICATION
     Dates: end: 20090901
  14. LANSOPRAZOLE [Concomitant]
     Indication: DRUG USE FOR UNKNOWN INDICATION
     Dates: end: 20090901
  15. TRIFLUCAN [Concomitant]
     Indication: DRUG USE FOR UNKNOWN INDICATION
     Dates: end: 20090901
  16. FUNGIZONE [Concomitant]
     Indication: DRUG USE FOR UNKNOWN INDICATION
     Dates: start: 20090901
  17. FOLINORAL [Concomitant]
     Indication: DRUG USE FOR UNKNOWN INDICATION
     Dates: start: 20090901
  18. SECTRAL [Concomitant]
     Indication: DRUG USE FOR UNKNOWN INDICATION
     Dates: start: 20090901
  19. DEXERYL ^PIERRE FABRE^ [Concomitant]
     Indication: DRUG USE FOR UNKNOWN INDICATION
     Dates: start: 20090901
  20. ACUPAN [Concomitant]
     Indication: DRUG USE FOR UNKNOWN INDICATION
     Dates: start: 20090901
  21. TOPALGIC [Concomitant]
     Indication: DRUG USE FOR UNKNOWN INDICATION
     Dates: end: 20090901
  22. DAFALGAN [Concomitant]
     Indication: DRUG USE FOR UNKNOWN INDICATION
     Dates: end: 20090901
  23. PYOSTACINE [Concomitant]
     Dates: start: 20091006, end: 20091009

REACTIONS (1)
  - RENAL FAILURE [None]
